FAERS Safety Report 10856725 (Version 1)
Quarter: 2015Q1

REPORT INFORMATION
  Report Type: Spontaneous
  Country: IT (occurrence: IT)
  Receive Date: 20150223
  Receipt Date: 20150223
  Transmission Date: 20150721
  Serious: Yes (Hospitalization, Other)
  Sender: FDA-Public Use
  Company Number: IT-MYLANLABS-2015M1005452

PATIENT

DRUGS (4)
  1. PANTOPRAZOLE [Interacting]
     Active Substance: PANTOPRAZOLE SODIUM
     Route: 065
  2. ATORVASTATIN [Interacting]
     Active Substance: ATORVASTATIN
     Indication: ACUTE CORONARY SYNDROME
     Route: 065
  3. ASPIRIN                            /00002701/ [Concomitant]
     Active Substance: ASPIRIN
     Route: 065
  4. CLOPIDOGREL [Suspect]
     Active Substance: CLOPIDOGREL BISULFATE
     Indication: ACUTE CORONARY SYNDROME
     Dosage: 75MG/DAY
     Route: 065

REACTIONS (2)
  - Drug interaction [Recovering/Resolving]
  - Hepatitis [Recovering/Resolving]
